FAERS Safety Report 4371308-3 (Version None)
Quarter: 2004Q2

REPORT INFORMATION
  Report Type: 
  Country: None (occurrence: None)
  Receive Date: 20040603
  Receipt Date: 20040525
  Transmission Date: 20050107
  Serious: Yes (Hospitalization, Other)
  Sender: FDA-Public Use
  Company Number: US-JNJFOC-20040506075

PATIENT
  Age: 74 Year
  Sex: Female
  Weight: 53.0709 kg

DRUGS (3)
  1. TOPAMAX [Suspect]
     Indication: CONVULSION
     Dosage: ORAL
     Route: 048
     Dates: start: 20020901, end: 20040127
  2. SEROQUEL [Concomitant]
  3. REMERON [Concomitant]

REACTIONS (7)
  - ANXIETY [None]
  - ARTERITIS [None]
  - BLINDNESS [None]
  - COGNITIVE DISORDER [None]
  - DEMENTIA [None]
  - PAPILLOEDEMA [None]
  - PSYCHOTIC DISORDER [None]
